FAERS Safety Report 4808877-2 (Version None)
Quarter: 2005Q4

REPORT INFORMATION
  Report Type: 
  Country: None (occurrence: None)
  Receive Date: 20051025
  Receipt Date: 20051014
  Transmission Date: 20060501
  Serious: Yes (Death, Hospitalization)
  Sender: FDA-Public Use
  Company Number: FR-JNJFOC-20051002258

PATIENT
  Age: 50 Year
  Sex: Female

DRUGS (2)
  1. RISPERDAL [Suspect]
     Route: 048
  2. RISPERDAL [Suspect]
     Route: 048

REACTIONS (5)
  - CHOLECYSTITIS [None]
  - INFECTION [None]
  - INTESTINAL OBSTRUCTION [None]
  - LEUKOPENIA [None]
  - SEPTIC SHOCK [None]
